FAERS Safety Report 5235206-5 (Version None)
Quarter: 2007Q1

REPORT INFORMATION
  Report Type: 
  Country: None (occurrence: None)
  Receive Date: 20070208
  Receipt Date: 20070208
  Transmission Date: 20070707
  Serious: Yes (Death, Life-Threatening, Hospitalization)
  Sender: FDA-Public Use
  Company Number: None

PATIENT
  Age: 49 Year
  Sex: Male
  Weight: 93 kg

DRUGS (4)
  1. INTERLEUKIN-2 (NOVARDIS) [Suspect]
     Indication: RENAL CELL CARCINOMA STAGE UNSPECIFIED
     Dosage: 11.7 MIU SQ 5X/WK
     Route: 058
     Dates: start: 20061219, end: 20070110
  2. BEVACIZUMAB [Suspect]
     Indication: RENAL CELL CARCINOMA STAGE UNSPECIFIED
     Dosage: 937 MG IV Q2 WKS
     Route: 042
     Dates: start: 20061205
  3. BEVACIZUMAB [Suspect]
     Indication: RENAL CELL CARCINOMA STAGE UNSPECIFIED
     Dosage: 937 MG IV Q2 WKS
     Route: 042
     Dates: start: 20061209
  4. BEVACIZUMAB [Suspect]
     Indication: RENAL CELL CARCINOMA STAGE UNSPECIFIED
     Dosage: 937 MG IV Q2 WKS
     Route: 042
     Dates: start: 20070102

REACTIONS (6)
  - ASCITES [None]
  - DISEASE PROGRESSION [None]
  - PERITONITIS [None]
  - PNEUMONIA [None]
  - RENAL FAILURE ACUTE [None]
  - SEPTIC SHOCK [None]
